FAERS Safety Report 8471742-6 (Version None)
Quarter: 2012Q2

REPORT INFORMATION
  Report Type: 
  Country: None (occurrence: None)
  Receive Date: 20120627
  Receipt Date: 20120619
  Transmission Date: 20120825
  Serious: Yes (Hospitalization, Other)
  Sender: FDA-Public Use
  Company Number: US-ASTRAZENECA-2011SE65397

PATIENT
  Age: 59 Year
  Sex: Female
  Weight: 68.9 kg

DRUGS (15)
  1. NEXIUM [Suspect]
     Route: 048
     Dates: start: 19920101
  2. PRILOSEC OTC [Suspect]
     Indication: GASTROOESOPHAGEAL REFLUX DISEASE
     Dosage: DAILY
     Route: 048
  3. IBUPROFEN [Concomitant]
  4. NEXIUM [Suspect]
     Route: 048
     Dates: start: 19920101
  5. STEROID [Concomitant]
  6. NEXIUM [Suspect]
     Indication: ABDOMINAL PAIN UPPER
     Route: 048
  7. NEXIUM [Suspect]
     Route: 048
     Dates: start: 19920101
  8. MUSCLE RELAXERS [Suspect]
     Route: 065
  9. ZANTAC [Concomitant]
  10. PEPSIDASE [Concomitant]
  11. NEXIUM [Suspect]
     Route: 048
  12. NEXIUM [Suspect]
     Indication: GASTROOESOPHAGEAL REFLUX DISEASE
     Route: 048
  13. NEXIUM [Suspect]
     Indication: GASTROOESOPHAGEAL REFLUX PROPHYLAXIS
     Route: 048
  14. NEXIUM [Suspect]
     Route: 048
     Dates: start: 19920101
  15. OTHER PAIN MEDICATION [Concomitant]

REACTIONS (20)
  - DYSPEPSIA [None]
  - BACK DISORDER [None]
  - OEDEMA PERIPHERAL [None]
  - CARDIAC FAILURE CONGESTIVE [None]
  - CARDIAC DISORDER [None]
  - DRUG INEFFECTIVE [None]
  - HYPERTENSION [None]
  - RESPIRATORY DISORDER [None]
  - PAIN [None]
  - INTENTIONAL DRUG MISUSE [None]
  - HAEMATEMESIS [None]
  - MUSCULOSKELETAL CHEST PAIN [None]
  - PNEUMONIA [None]
  - GASTROOESOPHAGEAL REFLUX DISEASE [None]
  - CARDIAC NEOPLASM UNSPECIFIED [None]
  - VOMITING [None]
  - GAIT DISTURBANCE [None]
  - GASTRIC DISORDER [None]
  - ABDOMINAL PAIN UPPER [None]
  - OFF LABEL USE [None]
